FAERS Safety Report 4822520-8 (Version None)
Quarter: 2005Q4

REPORT INFORMATION
  Report Type: 
  Country: None (occurrence: None)
  Receive Date: 20051104
  Receipt Date: 20051021
  Transmission Date: 20060501
  Serious: Yes (Hospitalization, Other)
  Sender: FDA-Public Use
  Company Number: UKP05000359

PATIENT
  Sex: Female

DRUGS (1)
  1. ACTONEL [Suspect]
     Dosage: 35 MG, 1/WEEK, ORAL
     Route: 048
     Dates: start: 20050101

REACTIONS (1)
  - BREAST CANCER FEMALE [None]
